FAERS Safety Report 25734953 (Version 6)
Quarter: 2025Q4

REPORT INFORMATION
  Report Type: Report from Study
  Country: KP (occurrence: KP)
  Receive Date: 20250828
  Receipt Date: 20251106
  Transmission Date: 20260118
  Serious: Yes (Hospitalization, Other)
  Sender: AUROBINDO
  Company Number: KP-AUROBINDO-AUR-APL-2025-043687

PATIENT
  Age: 79 Year
  Sex: Female
  Weight: 48.2 kg

DRUGS (87)
  1. PRALATREXATE [Suspect]
     Active Substance: PRALATREXATE
     Indication: Peripheral T-cell lymphoma unspecified stage IV
     Dosage: 20 MG/M2, CYCLICAL
     Route: 065
     Dates: start: 20020402
  2. PRALATREXATE [Suspect]
     Active Substance: PRALATREXATE
     Dosage: 20 MG/M2, CYCLICAL
     Route: 065
     Dates: start: 20250410
  3. PRALATREXATE [Suspect]
     Active Substance: PRALATREXATE
     Dosage: 20 MG/M2, CYCLICAL
     Route: 065
     Dates: start: 20250502
  4. PRALATREXATE [Suspect]
     Active Substance: PRALATREXATE
     Dosage: 20 MG/M2, CYCLICAL
     Route: 065
     Dates: start: 20250508
  5. PRALATREXATE [Suspect]
     Active Substance: PRALATREXATE
     Dosage: 20 MG/M2, CYCLICAL
     Route: 065
     Dates: start: 20250527
  6. PRALATREXATE [Suspect]
     Active Substance: PRALATREXATE
     Dosage: 20 MG/M2, CYCLICAL
     Route: 065
     Dates: start: 20250604
  7. PRALATREXATE [Suspect]
     Active Substance: PRALATREXATE
     Dosage: 20 MG/M2, CYCLICAL
     Route: 065
     Dates: start: 20250624
  8. PRALATREXATE [Suspect]
     Active Substance: PRALATREXATE
     Dosage: 20 MG/M2, CYCLICAL
     Route: 065
     Dates: start: 20250701
  9. PRALATREXATE [Suspect]
     Active Substance: PRALATREXATE
     Dosage: 20 MG/M2, CYCLICAL
     Route: 065
     Dates: start: 20250715
  10. PRALATREXATE [Suspect]
     Active Substance: PRALATREXATE
     Dosage: 20 MG/M2, CYCLICAL
     Route: 065
     Dates: start: 20250722
  11. PRALATREXATE [Suspect]
     Active Substance: PRALATREXATE
     Dosage: 20 MG/M2, CYCLICAL
     Route: 065
     Dates: start: 20250805
  12. PRALATREXATE [Suspect]
     Active Substance: PRALATREXATE
     Dosage: 20 MG/M2, CYCLICAL
     Route: 065
     Dates: start: 20250805
  13. PRALATREXATE [Suspect]
     Active Substance: PRALATREXATE
     Dosage: 20 MG/M2, CYCLICAL
     Route: 065
     Dates: start: 20250812
  14. PRALATREXATE [Suspect]
     Active Substance: PRALATREXATE
     Dosage: 13.4 MG/M2, CYCLICAL
     Route: 065
     Dates: start: 20250701
  15. PRALATREXATE [Suspect]
     Active Substance: PRALATREXATE
     Dosage: 13.4 MG/M2, CYCLICAL
     Route: 065
     Dates: start: 20250715
  16. PRALATREXATE [Suspect]
     Active Substance: PRALATREXATE
     Dosage: 18.89 MG/M2, CYCLICAL
     Route: 065
     Dates: start: 20250722
  17. PRALATREXATE [Suspect]
     Active Substance: PRALATREXATE
     Dosage: 18.89 MG/M2, CYCLICAL
     Route: 065
     Dates: start: 20250805
  18. PRALATREXATE [Suspect]
     Active Substance: PRALATREXATE
     Dosage: 18.89 MG/M2, CYCLICAL
     Route: 065
     Dates: start: 20250812
  19. CYCLOPHOSPHAMIDE [Suspect]
     Active Substance: CYCLOPHOSPHAMIDE
     Indication: Peripheral T-cell lymphoma unspecified stage IV
     Dosage: 750 MG/M2, CYCLICAL
     Route: 065
     Dates: start: 20250402
  20. CYCLOPHOSPHAMIDE [Suspect]
     Active Substance: CYCLOPHOSPHAMIDE
     Dosage: 750 MG/M2, CYCLICAL
     Route: 065
     Dates: start: 20250502
  21. CYCLOPHOSPHAMIDE [Suspect]
     Active Substance: CYCLOPHOSPHAMIDE
     Dosage: 750 MG/M2, CYCLICAL
     Route: 065
     Dates: start: 20250527
  22. CYCLOPHOSPHAMIDE [Suspect]
     Active Substance: CYCLOPHOSPHAMIDE
     Dosage: 750 MG/M2, CYCLICAL
     Route: 065
     Dates: start: 20250624
  23. CYCLOPHOSPHAMIDE [Suspect]
     Active Substance: CYCLOPHOSPHAMIDE
     Dosage: 750 MG/M2, CYCLICAL
     Route: 065
     Dates: start: 20250715
  24. CYCLOPHOSPHAMIDE [Suspect]
     Active Substance: CYCLOPHOSPHAMIDE
     Dosage: 750 MG/M2, CYCLICAL
     Route: 065
     Dates: start: 20250805
  25. VINCRISTINE [Suspect]
     Active Substance: VINCRISTINE
     Indication: Peripheral T-cell lymphoma unspecified stage IV
     Dosage: 1.4 MG/M2, CYCLICAL
     Route: 065
     Dates: start: 20250402
  26. VINCRISTINE [Suspect]
     Active Substance: VINCRISTINE
     Dosage: 1.4 MG/M2, CYCLICAL
     Route: 065
     Dates: start: 20250502
  27. VINCRISTINE [Suspect]
     Active Substance: VINCRISTINE
     Dosage: 1.4 MG/M2, CYCLICAL
     Route: 065
     Dates: start: 20250527
  28. VINCRISTINE [Suspect]
     Active Substance: VINCRISTINE
     Dosage: 1.4 MG/M2, CYCLICAL
     Route: 065
     Dates: start: 20250715
  29. VINCRISTINE [Suspect]
     Active Substance: VINCRISTINE
     Dosage: 1.4 MG/M2, CYCLICAL
     Route: 065
     Dates: start: 20250805
  30. PREDNISONE [Suspect]
     Active Substance: PREDNISONE
     Indication: Peripheral T-cell lymphoma unspecified stage IV
     Dosage: 100 MILLIGRAM, CYCLICAL
     Route: 065
     Dates: start: 20250402
  31. PREDNISONE [Suspect]
     Active Substance: PREDNISONE
     Dosage: 100 MILLIGRAM, CYCLICAL
     Route: 065
     Dates: start: 20250502
  32. PREDNISONE [Suspect]
     Active Substance: PREDNISONE
     Dosage: 100 MILLIGRAM, CYCLICAL
     Route: 065
     Dates: start: 20250527
  33. PREDNISONE [Suspect]
     Active Substance: PREDNISONE
     Dosage: 100 MILLIGRAM, CYCLICAL
     Route: 065
     Dates: start: 20250624
  34. PREDNISONE [Suspect]
     Active Substance: PREDNISONE
     Dosage: 100 MILLIGRAM, CYCLICAL
     Route: 065
     Dates: start: 20250715
  35. PREDNISONE [Suspect]
     Active Substance: PREDNISONE
     Dosage: 100 MILLIGRAM, CYCLICAL
     Route: 065
     Dates: start: 20250805
  36. OLMESARTAN [Concomitant]
     Active Substance: OLMESARTAN
     Indication: Diabetes mellitus
     Dosage: 1 DOSAGE FORM, ONCE A DAY
     Route: 048
     Dates: start: 2018, end: 20250410
  37. OLMESARTAN [Concomitant]
     Active Substance: OLMESARTAN
     Indication: Hypertension
  38. Glitazone [Concomitant]
     Indication: Product used for unknown indication
     Dosage: 15 MILLIGRAM, ONCE A DAY
     Route: 048
     Dates: start: 2018
  39. Crerova [Concomitant]
     Indication: Product used for unknown indication
     Dosage: 10 MILLIGRAM, ONCE A DAY
     Route: 048
     Dates: start: 2020
  40. VITAMIN D [Concomitant]
     Active Substance: VITAMIN D NOS
     Indication: Product used for unknown indication
     Dosage: 250 MILLIGRAM, ONCE A DAY
     Route: 048
     Dates: start: 2018
  41. METFORMIN [Concomitant]
     Active Substance: METFORMIN HYDROCHLORIDE
     Indication: Product used for unknown indication
     Dosage: 1 (OTHER), ONCE A DAY
     Route: 048
     Dates: start: 2023, end: 20250605
  42. FOLIC ACID [Concomitant]
     Active Substance: FOLIC ACID
     Indication: Toxicity to various agents
     Dosage: 1 MILLIGRAM, ONCE A DAY
     Route: 048
     Dates: start: 20250326
  43. Hemonics [Concomitant]
     Indication: Toxicity to various agents
     Dosage: 1 MILLIGRAM, ONCE A DAY
     Route: 030
     Dates: start: 20250331, end: 20250331
  44. Hemonics [Concomitant]
     Dosage: 1 MILLIGRAM, ONCE A DAY
     Route: 030
     Dates: start: 20250621, end: 20250624
  45. URSODIOL [Concomitant]
     Active Substance: URSODIOL
     Indication: Lymphoma
     Dosage: 200 MILLIGRAM, 3 TIMES A DAY
     Route: 048
     Dates: start: 20250331, end: 20250409
  46. Godex [Concomitant]
     Indication: Lymphoma
     Dosage: 1 (OTHER), 3 TIMES A DAY
     Route: 048
     Dates: start: 20250331, end: 20250409
  47. HUMALOG [Concomitant]
     Active Substance: INSULIN LISPRO
     Indication: Product used for unknown indication
     Dosage: 4 INTERNATIONAL UNIT, AS NECESSARY
     Route: 042
     Dates: start: 20250331, end: 20250402
  48. ONDANSETRON [Concomitant]
     Active Substance: ONDANSETRON
     Indication: Product used for unknown indication
     Dosage: 4 MILLIGRAM, AS NECESSARY
     Route: 065
     Dates: start: 20250402, end: 20250406
  49. Cab [Concomitant]
     Indication: Prophylaxis
     Dosage: 50 MILLIGRAM, AS NECESSARY
     Route: 048
     Dates: start: 20250402, end: 20250416
  50. PEGFILGRASTIM [Concomitant]
     Active Substance: PEGFILGRASTIM
     Indication: Neutropenia
     Dosage: 0.6 MILLILITER, PRN
     Route: 058
     Dates: start: 20250411
  51. NEUPOGEN [Concomitant]
     Active Substance: FILGRASTIM
     Indication: Product used for unknown indication
     Dosage: 300 MICROGRAM, ONCE A DAY
     Route: 058
     Dates: start: 20250414, end: 20250414
  52. AMINO ACIDS\DEXTROSE\ELECTROLYTES NOS\SOYBEAN OIL [Concomitant]
     Active Substance: AMINO ACIDS\DEXTROSE\ELECTROLYTES NOS\SOYBEAN OIL
     Indication: Product used for unknown indication
     Dosage: 986 MILLILITER, ONCE A DAY
     Route: 065
     Dates: start: 20250414, end: 20250424
  53. AMINO ACIDS\DEXTROSE\ELECTROLYTES NOS\SOYBEAN OIL [Concomitant]
     Active Substance: AMINO ACIDS\DEXTROSE\ELECTROLYTES NOS\SOYBEAN OIL
     Dosage: 986 MILLILITER, ONCE A DAY
     Route: 065
     Dates: start: 20250609, end: 20250615
  54. AMINO ACIDS\DEXTROSE\ELECTROLYTES NOS\SOYBEAN OIL [Concomitant]
     Active Substance: AMINO ACIDS\DEXTROSE\ELECTROLYTES NOS\SOYBEAN OIL
     Dosage: 986 MILLILITER, AS NECESSARY
     Route: 065
     Dates: start: 20250415, end: 20250420
  55. PHENIRAMINE [Concomitant]
     Active Substance: PHENIRAMINE
     Indication: Product used for unknown indication
     Dosage: 4 MILLIGRAM, PRN
     Route: 065
     Dates: start: 20250415, end: 20250420
  56. PHENIRAMINE [Concomitant]
     Active Substance: PHENIRAMINE
     Dosage: 4 MILLIGRAM, AS NECESSARY
     Route: 065
     Dates: start: 20250608, end: 20250613
  57. MAGNESIUM SULFATE [Concomitant]
     Active Substance: MAGNESIUM SULFATE
     Indication: Electrolyte imbalance
     Dosage: 4 GRAM, ONCE A DAY
     Route: 065
     Dates: start: 20250415, end: 20250424
  58. MAGNESIUM SULFATE [Concomitant]
     Active Substance: MAGNESIUM SULFATE
     Dosage: 4 GRAM, ONCE A DAY
     Route: 065
     Dates: start: 20250610, end: 20250616
  59. MAGNESIUM SULFATE [Concomitant]
     Active Substance: MAGNESIUM SULFATE
     Dosage: 4 GRAM, ONCE A DAY
     Route: 065
     Dates: start: 20250624, end: 20250624
  60. MAGNESIUM SULFATE [Concomitant]
     Active Substance: MAGNESIUM SULFATE
     Dosage: 4 GRAM, ONCE A DAY
     Route: 065
     Dates: start: 20250715, end: 20250715
  61. MAGNESIUM SULFATE [Concomitant]
     Active Substance: MAGNESIUM SULFATE
     Dosage: 20 INTERNATIONAL UNIT, ONCE A DAY
     Route: 065
     Dates: start: 20250414, end: 20250424
  62. HUMALOG [Concomitant]
     Active Substance: INSULIN LISPRO
     Indication: Product used for unknown indication
     Dosage: 20 INTERNATIONAL UNIT, ONCE A DAY
     Route: 065
     Dates: start: 20250414, end: 20250414
  63. HUMALOG [Concomitant]
     Active Substance: INSULIN LISPRO
     Dosage: 20 INTERNATIONAL UNIT, ONCE A DAY
     Route: 065
     Dates: start: 20250608, end: 20250615
  64. HUMALOG [Concomitant]
     Active Substance: INSULIN LISPRO
     Dosage: 4 INTERNATIONAL UNIT, PRN
     Route: 058
     Dates: start: 20250715
  65. KCL [Concomitant]
     Active Substance: POTASSIUM CHLORIDE
     Indication: Product used for unknown indication
     Dosage: 40 MILLIEQUIVALENT, ONCE A DAY
     Route: 065
     Dates: start: 20250415, end: 20250420
  66. LENOGRASTIM [Concomitant]
     Active Substance: LENOGRASTIM
     Indication: Product used for unknown indication
     Dosage: 250 MICROGRAM, ONCE A DAY
     Route: 058
     Dates: start: 20250416, end: 20250417
  67. MEPERIDINE [Concomitant]
     Active Substance: MEPERIDINE
     Indication: Product used for unknown indication
     Dosage: 25 MILLIGRAM, AS NECESSARY
     Route: 065
     Dates: start: 20250417, end: 20250420
  68. MEPERIDINE [Concomitant]
     Active Substance: MEPERIDINE
     Dosage: 25 MILLIGRAM, AS NECESSARY
     Route: 065
     Dates: start: 20250609, end: 20250610
  69. Phosten [Concomitant]
     Indication: Product used for unknown indication
     Dosage: 20 MILLILITER, ONCE A DAY
     Route: 065
     Dates: start: 20250418, end: 20250420
  70. PROPACETAMOL HYDROCHLORIDE [Concomitant]
     Active Substance: PROPACETAMOL HYDROCHLORIDE
     Indication: Product used for unknown indication
     Dosage: 1 GRAM, ONCE A DAY
     Route: 065
     Dates: start: 20250414, end: 20250416
  71. PROPACETAMOL HYDROCHLORIDE [Concomitant]
     Active Substance: PROPACETAMOL HYDROCHLORIDE
     Dosage: 1 GRAM, ONCE A DAY
     Route: 065
     Dates: start: 20250609, end: 20250609
  72. Fotagel [Concomitant]
     Indication: Product used for unknown indication
     Dosage: 20 MILLILITER, 3 TIMES A DAY
     Route: 048
     Dates: start: 20250416, end: 20250417
  73. VITAMINS [Concomitant]
     Active Substance: VITAMINS
     Indication: Product used for unknown indication
     Dosage: 1 (OTHER), ONCE A DAY
     Route: 065
     Dates: start: 20250418, end: 20250424
  74. PHENIRAMINE [Concomitant]
     Active Substance: PHENIRAMINE
     Indication: Product used for unknown indication
     Dosage: 4 MILLIGRAM, ONCE A DAY
     Route: 065
     Dates: start: 20250422, end: 20250422
  75. PHENIRAMINE [Concomitant]
     Active Substance: PHENIRAMINE
     Dosage: 4 MILLIGRAM, PRN
     Route: 065
     Dates: start: 20250604, end: 20250604
  76. Topisol [Concomitant]
     Indication: Product used for unknown indication
     Dosage: 1 (OTHER), TWO TIMES A DAY
     Route: 061
     Dates: start: 20250421, end: 20250424
  77. Dobesil [Concomitant]
     Indication: Product used for unknown indication
     Dosage: 500 MILLIGRAM, TWO TIMES A DAY
     Route: 048
     Dates: start: 20250512, end: 20250518
  78. Stillen [Concomitant]
     Indication: Prophylaxis
     Dosage: 90 MILLIGRAM, TWO TIMES A DAY
     Route: 048
     Dates: start: 20250512, end: 20250518
  79. LYRICA [Concomitant]
     Active Substance: PREGABALIN
     Indication: Product used for unknown indication
     Dosage: 50 MILLIGRAM, ONCE A DAY
     Route: 048
     Dates: start: 20250715
  80. Dicamax [Concomitant]
     Indication: Product used for unknown indication
     Dosage: 250 MILLIGRAM, ONCE A DAY
     Route: 048
     Dates: start: 2018
  81. Olmeduo [Concomitant]
     Indication: Product used for unknown indication
     Dosage: UNK (1 OTHER)
     Route: 048
     Dates: start: 2018, end: 20250410
  82. TRAMADOL HYDROCHLORIDE [Concomitant]
     Active Substance: TRAMADOL HYDROCHLORIDE
     Indication: Pyrexia
     Dosage: 50 MILLIGRAM, AS NECESSARY
     Route: 065
     Dates: start: 20250314, end: 20250414
  83. TRAMADOL HYDROCHLORIDE [Concomitant]
     Active Substance: TRAMADOL HYDROCHLORIDE
     Dosage: 50 MILLIGRAM, AS NECESSARY
     Route: 065
     Dates: start: 20250414, end: 20250418
  84. Roston [Concomitant]
     Indication: Dyslipidaemia
     Dosage: 10 MILLIGRAM, ONCE A DAY
     Route: 048
     Dates: start: 20250801
  85. PIONA [Concomitant]
     Active Substance: HYDROQUINONE
     Indication: Diabetes mellitus
     Dosage: 15 MILLIGRAM, ONCE A DAY
     Route: 048
     Dates: start: 20250801
  86. OLIMEL [Concomitant]
     Active Substance: AMINO ACIDS\DEXTROSE\SOYBEAN OIL
     Indication: Product used for unknown indication
     Dosage: 1000 MILLILITER, ONCE A DAY
     Route: 042
     Dates: start: 20250813, end: 20250817
  87. PLATELETS [Concomitant]
     Active Substance: HUMAN PLATELET, ALLOGENIC
     Indication: Product used for unknown indication
     Dosage: 250 MILLILITER, ONCE A DAY
     Route: 042
     Dates: start: 20250416, end: 20250416

REACTIONS (12)
  - Febrile neutropenia [Recovered/Resolved]
  - Pyrexia [Not Recovered/Not Resolved]
  - Thrombocytopenia [Not Recovered/Not Resolved]
  - Lower urinary tract symptoms [Not Recovered/Not Resolved]
  - Diarrhoea [Recovered/Resolved]
  - Neuralgia [Not Recovered/Not Resolved]
  - Hyperglycaemia [Recovered/Resolved]
  - Petechiae [Recovered/Resolved]
  - Anaemia [Recovered/Resolved]
  - Stomatitis [Recovered/Resolved]
  - Oral herpes [Recovered/Resolved]
  - Seroma [Recovered/Resolved]

NARRATIVE: CASE EVENT DATE: 20250402
